FAERS Safety Report 7555566-X (Version None)
Quarter: 2011Q2

REPORT INFORMATION
  Report Type: 
  Country: None (occurrence: None)
  Receive Date: 20110617
  Receipt Date: 20070413
  Transmission Date: 20111010
  Serious: Yes (Death, Other)
  Sender: FDA-Public Use
  Company Number: PHHO2003VE10648

PATIENT
  Sex: Male

DRUGS (11)
  1. ARCALION [Concomitant]
  2. ALTACE [Concomitant]
  3. SOMAZINA [Concomitant]
  4. WARFARIN SODIUM [Concomitant]
  5. DIGOXIN [Concomitant]
  6. DIOVAN [Suspect]
     Dosage: 40 MG, QD
     Route: 048
  7. LASIX [Concomitant]
  8. COUMADIN [Concomitant]
  9. ISOSORBIDE DINITRATE [Concomitant]
  10. ALDACTONE [Concomitant]
  11. BUMETANIDE [Concomitant]

REACTIONS (14)
  - GENERAL PHYSICAL HEALTH DETERIORATION [None]
  - HAEMATEMESIS [None]
  - ANEURYSM [None]
  - DEPRESSED MOOD [None]
  - DECREASED APPETITE [None]
  - CORONARY ARTERY DILATATION [None]
  - EMBOLIC STROKE [None]
  - ASPHYXIA [None]
  - ABASIA [None]
  - OEDEMA PERIPHERAL [None]
  - ARTERIAL CATHETERISATION [None]
  - APHASIA [None]
  - CARDIAC FAILURE [None]
  - DILATATION VENTRICULAR [None]
